FAERS Safety Report 6579695-2 (Version None)
Quarter: 2010Q1

REPORT INFORMATION
  Report Type: 
  Country: None (occurrence: None)
  Receive Date: 20100212
  Receipt Date: 20100203
  Transmission Date: 20100710
  Serious: Yes (Other)
  Sender: FDA-Public Use
  Company Number: US-JNJFOC-20100202217

PATIENT
  Sex: Female
  Weight: 58.97 kg

DRUGS (4)
  1. REMICADE [Suspect]
     Indication: CROHN'S DISEASE
     Route: 042
  2. REMICADE [Suspect]
     Route: 042
  3. SELENIUM [Concomitant]
  4. MULTI-VITAMINS [Concomitant]

REACTIONS (4)
  - ABDOMINAL PAIN UPPER [None]
  - EAR PAIN [None]
  - EYE MOVEMENT DISORDER [None]
  - SKIN LACERATION [None]
